FAERS Safety Report 7534855-9 (Version None)
Quarter: 2011Q2

REPORT INFORMATION
  Report Type: 
  Country: None (occurrence: None)
  Receive Date: 20110609
  Receipt Date: 20110527
  Transmission Date: 20111010
  Serious: Yes (Hospitalization)
  Sender: FDA-Public Use
  Company Number: US-BIOGENIDEC-2010BI032953

PATIENT
  Age: 63 Year
  Sex: Male
  Weight: 109 kg

DRUGS (27)
  1. PLAVIX [Concomitant]
     Indication: CARDIOVASCULAR DISORDER
     Route: 048
  2. METFORMIN HCL [Concomitant]
     Indication: DIABETES MELLITUS
     Route: 048
  3. FUROSEMIDE [Concomitant]
     Route: 048
  4. OMEPRAZOLE [Concomitant]
  5. DOXAZOSIN MESYLATE [Concomitant]
  6. LISINOPRIL [Concomitant]
     Route: 048
  7. FLOMAX [Concomitant]
     Route: 048
  8. LIPITOR [Concomitant]
     Indication: HYPERCHOLESTEROLAEMIA
     Route: 048
  9. LIDEX [Concomitant]
     Indication: PSORIASIS
  10. MULTI-VITAMIN [Concomitant]
  11. LISINOPRIL [Concomitant]
     Route: 048
  12. ACETAMINOPHEN [Concomitant]
  13. TYSABRI [Suspect]
     Indication: MULTIPLE SCLEROSIS
     Route: 042
     Dates: start: 20090617
  14. TYLENOL (CAPLET) [Concomitant]
  15. LISINOPRIL [Concomitant]
  16. LANTUS [Concomitant]
     Indication: DIABETES MELLITUS
     Route: 058
  17. FISH OIL [Concomitant]
     Route: 048
  18. OMEPRAZOLE [Concomitant]
     Route: 048
  19. HUMALOG [Concomitant]
  20. FUROSEMIDE [Concomitant]
  21. DOCUSATE [Concomitant]
  22. VITAMIN D [Concomitant]
  23. GABAPENTIN [Concomitant]
     Route: 048
  24. LIPITOR [Concomitant]
  25. FUROSEMIDE [Concomitant]
  26. FERROUS SULFATE TAB [Concomitant]
  27. ASCORBIC ACID [Concomitant]

REACTIONS (1)
  - SKIN ULCER [None]
